FAERS Safety Report 14684393 (Version 5)
Quarter: 2018Q2

REPORT INFORMATION
  Report Type: Report from Study
  Country: US (occurrence: US)
  Receive Date: 20180327
  Receipt Date: 20180611
  Transmission Date: 20180711
  Serious: Yes (Hospitalization)
  Sender: FDA-Public Use
  Company Number: US-PFIZER INC-2018100517

PATIENT
  Age: 62 Year
  Sex: Female

DRUGS (2)
  1. IBRANCE [Suspect]
     Active Substance: PALBOCICLIB
     Dosage: 100 MG, CYCLIC (DAILY FOR 21 DAYS IN A ROW, FOLLOWED BY 7 DAYS OFF EVERY 28 DAYS)
     Route: 048
     Dates: start: 20180510
  2. IBRANCE [Suspect]
     Active Substance: PALBOCICLIB
     Indication: BREAST CANCER FEMALE
     Dosage: 125 MG, CYCLIC (ONCE DAILY FOR 21 DAYS IN A ROW FOLLOWED BY 7 DAYS OFF)
     Route: 048
     Dates: start: 20180307, end: 20180322

REACTIONS (13)
  - Back pain [Recovering/Resolving]
  - Nausea [Recovering/Resolving]
  - Headache [Unknown]
  - Palpitations [Unknown]
  - Sinus congestion [Unknown]
  - Decreased appetite [Recovering/Resolving]
  - Diarrhoea [Unknown]
  - Constipation [Unknown]
  - Condition aggravated [Not Recovered/Not Resolved]
  - Cyst [Unknown]
  - White blood cell count decreased [Recovering/Resolving]
  - Anxiety [Not Recovered/Not Resolved]
  - Arthralgia [Unknown]

NARRATIVE: CASE EVENT DATE: 2018
